FAERS Safety Report 14169276 (Version 1)
Quarter: 2017Q4

REPORT INFORMATION
  Report Type: Spontaneous
  Country: US (occurrence: US)
  Receive Date: 20171108
  Receipt Date: 20171108
  Transmission Date: 20180321
  Serious: Yes (Disabling, Other)
  Sender: FDA-Public Use
  Company Number: PHEH2017US035141

PATIENT
  Age: 54 Year

DRUGS (4)
  1. SYNTHROID [Concomitant]
     Active Substance: LEVOTHYROXINE SODIUM
     Indication: THYROID HORMONE REPLACEMENT THERAPY
     Dosage: 0.137 MG, QD
     Route: 048
     Dates: start: 20110701
  2. GLEEVEC [Suspect]
     Active Substance: IMATINIB MESYLATE
     Dosage: 800 MG, UNK
     Route: 048
     Dates: start: 201702
  3. GLEEVEC [Suspect]
     Active Substance: IMATINIB MESYLATE
     Indication: GASTROINTESTINAL STROMAL TUMOUR
     Dosage: 400 MG, QD
     Route: 048
     Dates: start: 20150928
  4. GLEEVEC [Suspect]
     Active Substance: IMATINIB MESYLATE
     Dosage: 600 MG, QD
     Route: 048
     Dates: start: 201703, end: 20171027

REACTIONS (10)
  - Pain [Not Recovered/Not Resolved]
  - Anxiety [Unknown]
  - Blister [Not Recovered/Not Resolved]
  - Gastrointestinal stromal tumour [Unknown]
  - Malignant neoplasm progression [Unknown]
  - Sleep disorder [Unknown]
  - Diarrhoea [Recovering/Resolving]
  - Pemphigoid [Recovering/Resolving]
  - Myalgia [Unknown]
  - Bone pain [Unknown]

NARRATIVE: CASE EVENT DATE: 201702
